FAERS Safety Report 4446852-0 (Version None)
Quarter: 2004Q3

REPORT INFORMATION
  Report Type: 
  Country: None (occurrence: None)
  Receive Date: 20040908
  Receipt Date: 20040827
  Transmission Date: 20050211
  Serious: Yes (Death, Hospitalization)
  Sender: FDA-Public Use
  Company Number: K200401303

PATIENT
  Age: 73 Year
  Sex: Male

DRUGS (4)
  1. ALTACE [Suspect]
     Indication: HYPERTENSION
     Dosage: 5 MG QD ORAL
     Route: 048
     Dates: start: 20040701, end: 20040701
  2. FELODIPINE [Suspect]
     Indication: HYPERTENSION
     Dosage: 5 MG QD ORAL
     Route: 048
     Dates: start: 20040701, end: 20040701
  3. FOLIC ACID [Concomitant]
  4. NEDOCROMIL (NEDOCROMIL) [Concomitant]

REACTIONS (1)
  - HEPATIC FAILURE [None]
